FAERS Safety Report 5298656-7 (Version None)
Quarter: 2007Q2

REPORT INFORMATION
  Report Type: 
  Country: None (occurrence: None)
  Receive Date: 20070409
  Receipt Date: 20070326
  Transmission Date: 20071010
  Serious: Yes (Death)
  Sender: FDA-Public Use
  Company Number: 237478

PATIENT
  Age: 71 Year
  Sex: Male
  Weight: 65.3 kg

DRUGS (8)
  1. AVASTIN [Suspect]
     Indication: COLORECTAL CANCER METASTATIC
     Dosage: 552 MG, Q2W, INTRAVENOUS
     Route: 042
     Dates: start: 20061206, end: 20070212
  2. CETUXIMAB(CETUXIMAB) [Suspect]
     Indication: COLORECTAL CANCER METASTATIC
     Dosage: 470 MG, 1/WEEK, INTRAVENOUS
     Route: 042
     Dates: start: 20061206, end: 20070212
  3. FLUOROURACIL [Suspect]
     Indication: COLORECTAL CANCER METASTATIC
     Dosage: 3384 MG, Q2W, INTRAVENOUS; 564 MG, INTRAVENOUS
     Route: 042
     Dates: start: 20061206, end: 20070212
  4. FLUOROURACIL [Suspect]
     Indication: COLORECTAL CANCER METASTATIC
     Dosage: 3384 MG, Q2W, INTRAVENOUS; 564 MG, INTRAVENOUS
     Route: 042
     Dates: start: 20061206, end: 20070212
  5. LEUCOVORIN CALCIUM [Suspect]
     Dosage: 752 MG, Q2W, INTRAVENOUS
     Route: 042
     Dates: start: 20061206, end: 20070212
  6. BENICAR [Concomitant]
  7. NORVASC [Concomitant]
  8. VICODIN [Concomitant]

REACTIONS (4)
  - ARTERIOSCLEROSIS [None]
  - HYPERTENSIVE HEART DISEASE [None]
  - INTESTINAL ULCER PERFORATION [None]
  - PERITONITIS [None]
